FAERS Safety Report 17800106 (Version 2)
Quarter: 2020Q2

REPORT INFORMATION
  Report Type: Spontaneous
  Country: GB (occurrence: GB)
  Receive Date: 20200518
  Receipt Date: 20200609
  Transmission Date: 20200714
  Serious: Yes (Other)
  Sender: FDA-Public Use
  Company Number: GB-PERRIGO-20GB006829

PATIENT
  Age: 67 Year
  Sex: Female
  Weight: 82.55 kg

DRUGS (8)
  1. CHOLESTAGEL [Concomitant]
     Active Substance: COLESEVELAM HYDROCHLORIDE
  2. PARACETAMOL [Concomitant]
     Active Substance: ACETAMINOPHEN
  3. CEFALEXIN [Concomitant]
     Active Substance: CEPHALEXIN
  4. QUINOLINE YELLOW [Suspect]
     Active Substance: D+C YELLOW NO. 10
     Indication: PRODUCT USED FOR UNKNOWN INDICATION
     Dosage: UNK
     Route: 065
  5. CHOLESTAGEL [Concomitant]
     Active Substance: COLESEVELAM HYDROCHLORIDE
  6. NORZOL 40MG/ML PL00427/0068 [Suspect]
     Active Substance: METRONIDAZOLE BENZOATE
     Dosage: 400 MG
     Dates: start: 20200423
  7. CEFALEXIN [Concomitant]
     Active Substance: CEPHALEXIN
  8. PARACETAMOL [Concomitant]
     Active Substance: ACETAMINOPHEN

REACTIONS (4)
  - Peripheral swelling [Recovering/Resolving]
  - Tendonitis [Recovering/Resolving]
  - Diarrhoea [Recovering/Resolving]
  - Pain [Recovering/Resolving]

NARRATIVE: CASE EVENT DATE: 20200424
